FAERS Safety Report 16438724 (Version 1)
Quarter: 2019Q2

REPORT INFORMATION
  Report Type: Spontaneous
  Country: US (occurrence: US)
  Receive Date: 20190617
  Receipt Date: 20190617
  Transmission Date: 20190711
  Serious: Yes (Life-Threatening, Other)
  Sender: FDA-Public Use
  Company Number: US-LUPIN PHARMACEUTICALS INC.-2019-03658

PATIENT
  Age: 12 Year
  Sex: Male

DRUGS (2)
  1. LISDEXAMFETAMINE [Concomitant]
     Active Substance: LISDEXAMFETAMINE
     Indication: PRODUCT USED FOR UNKNOWN INDICATION
     Dosage: UNK
     Route: 065
  2. BUPROPION. [Suspect]
     Active Substance: BUPROPION
     Indication: PRODUCT USED FOR UNKNOWN INDICATION
     Dosage: UNK
     Route: 065

REACTIONS (8)
  - Cardiac arrest [Unknown]
  - Hypotension [Unknown]
  - Tachycardia [Unknown]
  - Cardiogenic shock [Unknown]
  - Overdose [Unknown]
  - Seizure [Unknown]
  - Tachyarrhythmia [Unknown]
  - Torsade de pointes [Unknown]
